FAERS Safety Report 7376469-X (Version None)
Quarter: 2011Q1

REPORT INFORMATION
  Report Type: 
  Country: None (occurrence: None)
  Receive Date: 20110317
  Receipt Date: 20110310
  Transmission Date: 20110831
  Serious: No
  Sender: FDA-Public Use
  Company Number: CC-11-023

PATIENT
  Age: 15 Month
  Sex: Female

DRUGS (1)
  1. IBUPROFEN [Suspect]
     Indication: TEETHING
     Dosage: 5ML ONCE, ORAL
     Route: 048
     Dates: start: 20110309

REACTIONS (1)
  - INCORRECT DOSE ADMINISTERED [None]
